FAERS Safety Report 12925727 (Version 1)
Quarter: 2016Q4

REPORT INFORMATION
  Report Type: Spontaneous
  Country: US (occurrence: US)
  Receive Date: 20161108
  Receipt Date: 20161108
  Transmission Date: 20170207
  Serious: No
  Sender: FDA-Public Use
  Company Number: US-SA-2016SA184493

PATIENT
  Age: 74 Year
  Sex: Male

DRUGS (8)
  1. AZITHROMYCIN ANHYDROUS. [Concomitant]
     Active Substance: AZITHROMYCIN ANHYDROUS
  2. LISINOPRIL. [Concomitant]
     Active Substance: LISINOPRIL
  3. CARVEDILOL. [Concomitant]
     Active Substance: CARVEDILOL
  4. METFORMIN [Concomitant]
     Active Substance: METFORMIN HYDROCHLORIDE
  5. PANTOPRAZOLE [Concomitant]
     Active Substance: PANTOPRAZOLE SODIUM
  6. PRALUENT [Suspect]
     Active Substance: ALIROCUMAB
     Route: 058
  7. CEFUROXIME. [Concomitant]
     Active Substance: CEFUROXIME
  8. ALIROCUMAB [Concomitant]
     Active Substance: ALIROCUMAB

REACTIONS (2)
  - Injection site swelling [Not Recovered/Not Resolved]
  - Injection site erythema [Not Recovered/Not Resolved]
